FAERS Safety Report 18885277 (Version 1)
Quarter: 2021Q1

REPORT INFORMATION
  Report Type: Spontaneous
  Country: US (occurrence: US)
  Receive Date: 20210211
  Receipt Date: 20210211
  Transmission Date: 20210420
  Serious: Yes (Hospitalization)
  Sender: FDA-Public Use
  Company Number: None

PATIENT
  Age: 80 Year
  Sex: Male

DRUGS (1)
  1. METOPROLOL SUCCINATE. [Suspect]
     Active Substance: METOPROLOL SUCCINATE
     Dosage: 1/2 TABLET DAILY ORALLY
     Dates: start: 20201026, end: 20201105

REACTIONS (3)
  - Tachypnoea [None]
  - Pneumonia [None]
  - Angina pectoris [None]

NARRATIVE: CASE EVENT DATE: 20201105
